FAERS Safety Report 7526598-2 (Version None)
Quarter: 2011Q2

REPORT INFORMATION
  Report Type: 
  Country: None (occurrence: None)
  Receive Date: 20110606
  Receipt Date: 20110531
  Transmission Date: 20111010
  Serious: Yes (Death, Other)
  Sender: FDA-Public Use
  Company Number: JP-CELGENEUS-087-21880-10120485

PATIENT
  Sex: Male
  Weight: 52 kg

DRUGS (8)
  1. AMOBAN [Concomitant]
     Indication: INSOMNIA
     Dosage: 75 MILLIGRAM
     Route: 048
     Dates: start: 20100930, end: 20101018
  2. RABEPRAZOLE SODIUM [Concomitant]
     Indication: PROPHYLAXIS
     Dosage: 990 MILLIGRAM
     Route: 048
     Dates: start: 20100930, end: 20101018
  3. MAGMITT [Concomitant]
     Indication: PROPHYLAXIS
     Dosage: 990 MILLIGRAM
     Route: 048
     Dates: start: 20100930, end: 20101018
  4. PLATELETS [Concomitant]
     Route: 051
     Dates: start: 20100101, end: 20100101
  5. REVLIMID [Suspect]
     Indication: MULTIPLE MYELOMA
     Dosage: 25 MILLIGRAM
     Route: 048
     Dates: start: 20100930, end: 20101008
  6. SHOKENCHUTO [Concomitant]
     Indication: PROPHYLAXIS
     Dosage: 75 GRAM
     Route: 048
     Dates: start: 20100930, end: 20101018
  7. DEXART [Concomitant]
     Indication: MULTIPLE MYELOMA
     Dosage: 20 MILLIGRAM
     Route: 041
     Dates: start: 20100930, end: 20101018
  8. ALDACTONE [Concomitant]
     Indication: HYPERTENSION
     Dosage: 25 MILLIGRAM
     Route: 048
     Dates: start: 20100930, end: 20101018

REACTIONS (2)
  - NEUTROPENIA [None]
  - MULTIPLE MYELOMA [None]
